FAERS Safety Report 10077147 (Version 1)
Quarter: 2014Q2

REPORT INFORMATION
  Report Type: Spontaneous
  Country: US (occurrence: US)
  Receive Date: 20140414
  Receipt Date: 20140414
  Transmission Date: 20141212
  Serious: No
  Sender: FDA-Public Use
  Company Number: US-ELI_LILLY_AND_COMPANY-US201404001530

PATIENT
  Sex: Male

DRUGS (4)
  1. CIALIS [Suspect]
     Indication: ERECTILE DYSFUNCTION
     Dosage: 5 MG, QD
     Route: 048
     Dates: start: 20130801
  2. CIALIS [Suspect]
     Dosage: 20 MG, PRN
     Route: 048
     Dates: start: 20130801
  3. ASPIRIN [Concomitant]
  4. MULTIVITAMIN                       /00097801/ [Concomitant]

REACTIONS (3)
  - Vision blurred [Unknown]
  - Visual acuity reduced [Unknown]
  - Prescribed overdose [Unknown]
